FAERS Safety Report 13055110 (Version 1)
Quarter: 2016Q4

REPORT INFORMATION
  Report Type: Spontaneous
  Country: US (occurrence: US)
  Receive Date: 20161222
  Receipt Date: 20161222
  Transmission Date: 20170207
  Serious: No
  Sender: FDA-Public Use
  Company Number: US-PFIZER INC-2016587007

PATIENT
  Age: 73 Year
  Sex: Female
  Weight: 81.65 kg

DRUGS (17)
  1. LEVOTHYROXINE. [Concomitant]
     Active Substance: LEVOTHYROXINE
     Indication: THYROID DISORDER
     Dosage: 0.100MG ONE IN THE MORNING
  2. MUCINEX [Concomitant]
     Active Substance: GUAIFENESIN
     Indication: SINUS CONGESTION
     Dosage: 1200 MG, 2X/DAY
  3. SERTRALINE [Concomitant]
     Active Substance: SERTRALINE HYDROCHLORIDE
     Dosage: 100MG TWO TABLETS EVERY DAY
  4. XANAX [Concomitant]
     Active Substance: ALPRAZOLAM
     Indication: FEELING OF RELAXATION
  5. LISINOPRIL. [Concomitant]
     Active Substance: LISINOPRIL
     Dosage: 40MG ONE TABLET ONCE A DAY
  6. VITAMIN D [Concomitant]
     Active Substance: CHOLECALCIFEROL
     Indication: VITAMIN SUPPLEMENTATION
     Dosage: 50000 IU DU ERGO CAPS ONCE A WEEK
  7. LYRICA [Suspect]
     Active Substance: PREGABALIN
     Indication: FIBROMYALGIA
     Dosage: TWO 225MG CAPSULES AT NIGHT
     Route: 048
  8. OMEPRAZOLE. [Concomitant]
     Active Substance: OMEPRAZOLE
     Indication: GASTROOESOPHAGEAL REFLUX DISEASE
     Dosage: 40MG TWO EVERY DAY; ONE IN MORNING AND ONE AT NIGHT
  9. POTASSIUM CL [Concomitant]
     Active Substance: POTASSIUM CHLORIDE
     Indication: BLOOD POTASSIUM DECREASED
     Dosage: TWO 10MG PER DAY
  10. XOPENEX [Concomitant]
     Active Substance: LEVALBUTEROL HYDROCHLORIDE
     Indication: DYSPNOEA
     Dosage: .63MG INHALER ONE SPRAY. RESCUE INHALER
  11. VITAMIN C [Concomitant]
     Active Substance: ASCORBIC ACID
     Indication: VITAMIN SUPPLEMENTATION
     Dosage: 500MG TWO A DAY
  12. CALCIUM [Concomitant]
     Active Substance: CALCIUM
     Indication: MINERAL SUPPLEMENTATION
     Dosage: 600 MG, 1X/DAY
  13. TOPIRAMATE. [Concomitant]
     Active Substance: TOPIRAMATE
     Indication: MIGRAINE
     Dosage: 50MG TWO TABLETS EVERY DAY; ONE MORNING AND ONE AT NIGHT
  14. XANAX [Concomitant]
     Active Substance: ALPRAZOLAM
     Indication: SLEEP DISORDER
     Dosage: .5MG TWO TABLETS AT NIGHT
  15. TRAMADOL. [Concomitant]
     Active Substance: TRAMADOL
     Indication: ARTHRALGIA
     Dosage: 300 MG, DAILY
  16. FUROSEMIDE. [Concomitant]
     Active Substance: FUROSEMIDE
     Indication: FLUID RETENTION
     Dosage: 40MG ONE IN THE MORNING
  17. HYDROCODONE [Concomitant]
     Active Substance: HYDROCODONE
     Indication: SPINAL OPERATION
     Dosage: 10-325MG 4-6 TABLETS PER DAY DEPENDS ON PAIN

REACTIONS (1)
  - Memory impairment [Not Recovered/Not Resolved]
